FAERS Safety Report 8599439-2 (Version None)
Quarter: 2012Q3

REPORT INFORMATION
  Report Type: 
  Country: None (occurrence: None)
  Receive Date: 20120816
  Receipt Date: 20120808
  Transmission Date: 20120928
  Serious: Yes (Hospitalization)
  Sender: FDA-Public Use
  Company Number: US-JNJFOC-20120804468

PATIENT
  Sex: Female
  Weight: 61.69 kg

DRUGS (3)
  1. LEVETIRACETAM [Concomitant]
     Indication: CONVULSION
     Route: 048
  2. NUCYNTA [Suspect]
     Indication: PROCEDURAL PAIN
     Dosage: 1-2 TABLETS AS NEEDED EVERY 4 HOURS
     Route: 048
     Dates: start: 20120430, end: 20120521
  3. AN UNKNOWN MEDICATION [Concomitant]
     Indication: PAIN IN EXTREMITY
     Route: 048

REACTIONS (5)
  - HYPOTENSION [None]
  - ASTHENIA [None]
  - SHOCK [None]
  - SYNCOPE [None]
  - FEELING ABNORMAL [None]
